FAERS Safety Report 9843299 (Version 1)
Quarter: 2014Q1

REPORT INFORMATION
  Report Type: Report from Study
  Country: ID (occurrence: ID)
  Receive Date: 20140125
  Receipt Date: 20140125
  Transmission Date: 20141002
  Serious: Yes (Death)
  Sender: FDA-Public Use
  Company Number: ID-ROCHE-1338827

PATIENT
  Age: 58 Year
  Sex: Male

DRUGS (1)
  1. MABTHERA [Suspect]
     Indication: NON-HODGKIN^S LYMPHOMA
     Route: 065
     Dates: start: 20110531

REACTIONS (1)
  - Death [Fatal]
